FAERS Safety Report 17516926 (Version 1)
Quarter: 2020Q1

REPORT INFORMATION
  Report Type: Spontaneous
  Country: US (occurrence: US)
  Receive Date: 20200307
  Receipt Date: 20200307
  Transmission Date: 20200409
  Serious: No
  Sender: FDA-Public Use
  Company Number: None

PATIENT
  Age: 19 Year
  Sex: Female
  Weight: 58.5 kg

DRUGS (2)
  1. NEUTROGENA ULTRA SHEER DRY TOUCH SUNSCREEN BROAD SPECTRUM SPF 55 [Suspect]
     Active Substance: AVOBENZONE\HOMOSALATE\OCTISALATE\OCTOCRYLENE\OXYBENZONE
     Indication: PROPHYLAXIS AGAINST SOLAR RADIATION
     Dosage: ?          OTHER STRENGTH:SPF;QUANTITY:3 DROP(S);?
     Route: 061
     Dates: start: 20200226, end: 20200304
  2. TRETINOIN. [Concomitant]
     Active Substance: TRETINOIN

REACTIONS (8)
  - Skin exfoliation [None]
  - Sensitive skin [None]
  - Skin erosion [None]
  - Skin irritation [None]
  - Pain of skin [None]
  - Acne [None]
  - Dry skin [None]
  - Erythema [None]

NARRATIVE: CASE EVENT DATE: 20200304
